FAERS Safety Report 22247198 (Version 1)
Quarter: 2023Q2

REPORT INFORMATION
  Report Type: Report from Study
  Country: CO (occurrence: CO)
  Receive Date: 20230424
  Receipt Date: 20230424
  Transmission Date: 20230722
  Serious: Yes (Hospitalization, Other)
  Sender: FDA-Public Use
  Company Number: CO-ABBVIE-4737237

PATIENT
  Age: 34 Year
  Sex: Female
  Weight: 86 kg

DRUGS (3)
  1. HUMIRA [Suspect]
     Active Substance: ADALIMUMAB
     Indication: Ankylosing spondylitis
     Route: 058
     Dates: end: 20230124
  2. HUMIRA [Suspect]
     Active Substance: ADALIMUMAB
  3. LEVOTHYROXINE SODIUM [Concomitant]
     Active Substance: LEVOTHYROXINE SODIUM
     Indication: Hypothyroidism
     Dosage: 1 TABLET
     Route: 048

REACTIONS (9)
  - Abdominal mass [Recovered/Resolved]
  - Joint effusion [Not Recovered/Not Resolved]
  - Back pain [Recovered/Resolved]
  - Nodule [Unknown]
  - Disseminated tuberculosis [Unknown]
  - Mass [Unknown]
  - Urinary tract infection [Recovered/Resolved]
  - Arthritis [Not Recovered/Not Resolved]
  - Arthralgia [Not Recovered/Not Resolved]

NARRATIVE: CASE EVENT DATE: 20221101
